FAERS Safety Report 5072752-1 (Version None)
Quarter: 2006Q3

REPORT INFORMATION
  Report Type: 
  Country: None (occurrence: None)
  Receive Date: 20060807
  Receipt Date: 20060615
  Transmission Date: 20061208
  Serious: Yes (Hospitalization, Other)
  Sender: FDA-Public Use
  Company Number: 2006UW12752

PATIENT
  Age: 18811 Day
  Sex: Female
  Weight: 106.9 kg

DRUGS (7)
  1. TOPROL-XL [Suspect]
     Indication: BLOOD PRESSURE INCREASED
     Route: 048
     Dates: start: 20050621
  2. LASIX [Suspect]
     Indication: HYPERTENSION
     Route: 048
     Dates: start: 20050621
  3. HYDROCHLOROTHIAZIDE [Suspect]
     Indication: HYPERTENSION
     Route: 048
     Dates: start: 20040610
  4. TIAGABINE HCL [Suspect]
     Indication: GENERALISED ANXIETY DISORDER
     Route: 048
     Dates: start: 20041221, end: 20050720
  5. TIAGABINE HCL [Suspect]
     Dosage: 4 MG QAM AND 8 MG QHS
     Route: 048
     Dates: start: 20050721, end: 20050729
  6. ATENOLOL [Concomitant]
     Route: 048
     Dates: start: 20040610, end: 20050620
  7. IRON [Concomitant]
     Dates: start: 20040616

REACTIONS (4)
  - HYPERTENSION [None]
  - HYPOKALAEMIA [None]
  - PANIC ATTACK [None]
  - SUPRAVENTRICULAR TACHYCARDIA [None]
